FAERS Safety Report 12725090 (Version 1)
Quarter: 2016Q3

REPORT INFORMATION
  Report Type: Report from Study
  Country: BR (occurrence: BR)
  Receive Date: 20160908
  Receipt Date: 20160908
  Transmission Date: 20161109
  Serious: Yes (Hospitalization)
  Sender: FDA-Public Use
  Company Number: BR-ABBVIE-16K-020-1718459-00

PATIENT
  Age: 53 Year
  Sex: Female
  Weight: 59 kg

DRUGS (3)
  1. OMEPRAZOLE. [Concomitant]
     Active Substance: OMEPRAZOLE
     Indication: ABDOMINAL DISCOMFORT
     Route: 048
  2. HUMIRA [Suspect]
     Active Substance: ADALIMUMAB
     Indication: PSORIATIC ARTHROPATHY
     Route: 058
     Dates: start: 20120101, end: 20160719
  3. EUTHYROX [Concomitant]
     Active Substance: LEVOTHYROXINE SODIUM
     Indication: HYPOTHYROIDISM
     Route: 048

REACTIONS (12)
  - Eating disorder [Unknown]
  - Sputum discoloured [Recovering/Resolving]
  - Rhinitis [Recovering/Resolving]
  - Immunodeficiency [Unknown]
  - Pyrexia [Recovered/Resolved]
  - Constipation [Recovered/Resolved]
  - Anaemia [Not Recovered/Not Resolved]
  - Haematochezia [Recovered/Resolved]
  - Weight decreased [Unknown]
  - Pain in extremity [Recovering/Resolving]
  - Pneumonia [Not Recovered/Not Resolved]
  - Asthma [Recovering/Resolving]

NARRATIVE: CASE EVENT DATE: 201604
